FAERS Safety Report 17511342 (Version 1)
Quarter: 2020Q1

REPORT INFORMATION
  Report Type: Spontaneous
  Country: US (occurrence: US)
  Receive Date: 20200306
  Receipt Date: 20200306
  Transmission Date: 20200409
  Serious: No
  Sender: FDA-Public Use
  Company Number: NVSC2020US064185

PATIENT
  Age: 24 Year
  Sex: Female

DRUGS (2)
  1. NEOMYCIN,POLYMYXIN B [Suspect]
     Active Substance: NEOMYCIN\POLYMYXIN B
     Indication: INTRAOCULAR PRESSURE TEST
     Dosage: UNK
     Route: 065
  2. DEXAMETHASONE SODIUM PHOSPHATE. [Suspect]
     Active Substance: DEXAMETHASONE SODIUM PHOSPHATE
     Indication: INTRAOCULAR PRESSURE TEST
     Dosage: UNK
     Route: 065

REACTIONS (1)
  - Intraocular pressure increased [Unknown]
